FAERS Safety Report 22377983 (Version 1)
Quarter: 2023Q2

REPORT INFORMATION
  Report Type: Spontaneous
  Country: ZA (occurrence: ZA)
  Receive Date: 20230529
  Receipt Date: 20230529
  Transmission Date: 20230722
  Serious: Yes (Other)
  Sender: FDA-Public Use
  Company Number: ZA-SA-SAC20230525001385

PATIENT
  Age: 58 Year
  Sex: Male

DRUGS (3)
  1. TOUJEO [Suspect]
     Active Substance: INSULIN GLARGINE
     Indication: Type 2 diabetes mellitus
     Dosage: 50 IU, QD
     Route: 065
  2. METFORMIN [Concomitant]
     Active Substance: METFORMIN HYDROCHLORIDE
     Dosage: 1000 MG, BID
     Dates: start: 2021
  3. APIDRA [Concomitant]
     Active Substance: INSULIN GLULISINE
     Dosage: 20 IU, QD
     Dates: start: 2021

REACTIONS (2)
  - Neuropathy peripheral [Unknown]
  - Glycosylated haemoglobin increased [Unknown]
